FAERS Safety Report 7045484-8 (Version None)
Quarter: 2010Q4

REPORT INFORMATION
  Report Type: 
  Country: None (occurrence: None)
  Receive Date: 20101014
  Receipt Date: 20100917
  Transmission Date: 20110411
  Serious: No
  Sender: FDA-Public Use
  Company Number: US-ALLERGAN-1012064US

PATIENT
  Age: 51 Year
  Sex: Female

DRUGS (2)
  1. LATISSE [Suspect]
     Indication: GROWTH OF EYELASHES
     Dosage: UNK
     Route: 061
     Dates: start: 20091201
  2. PERMANENT EYELINER [Concomitant]

REACTIONS (2)
  - INCORRECT DOSE ADMINISTERED [None]
  - SKIN DISCOLOURATION [None]
